FAERS Safety Report 23897316 (Version 2)
Quarter: 2024Q3

REPORT INFORMATION
  Report Type: Spontaneous
  Country: US (occurrence: US)
  Receive Date: 20240524
  Receipt Date: 20240913
  Transmission Date: 20241017
  Serious: No
  Sender: KARYOPHARM THERAPEUTICS
  Company Number: US-KARYOPHARM-2024KPT001028

PATIENT

DRUGS (11)
  1. XPOVIO [Suspect]
     Active Substance: SELINEXOR
     Indication: Plasma cell myeloma
     Dosage: 80 MG, 2X/WEEK
     Route: 048
     Dates: start: 20240430
  2. XPOVIO [Suspect]
     Active Substance: SELINEXOR
     Dosage: 80 MG, WEEKLY ON DAYS 1,8,15 AND 22 OF  A 28 DAY CYCLE
     Route: 048
     Dates: start: 202405, end: 202407
  3. ACYCLOVIR [Concomitant]
     Active Substance: ACYCLOVIR
  4. DEXAMETHASONE [Concomitant]
     Active Substance: DEXAMETHASONE
  5. ELIQUIS [Concomitant]
     Active Substance: APIXABAN
  6. GABAPENTIN [Concomitant]
     Active Substance: GABAPENTIN
  7. METOPROLOL SUCCINATE [Concomitant]
     Active Substance: METOPROLOL SUCCINATE
  8. ONDANSETRON [Concomitant]
     Active Substance: ONDANSETRON
  9. PERCOCET [Concomitant]
     Active Substance: ACETAMINOPHEN\OXYCODONE HYDROCHLORIDE
  10. PROCHLORPERAZINE [Concomitant]
     Active Substance: PROCHLORPERAZINE
  11. K PHOS NEUTRAL [Concomitant]
     Active Substance: POTASSIUM PHOSPHATE, MONOBASIC\SODIUM PHOSPHATE, DIBASIC, ANHYDROUS\SODIUM PHOSPHATE, MONOBASIC, MON

REACTIONS (2)
  - Abdominal discomfort [Not Recovered/Not Resolved]
  - Drug resistance [Unknown]

NARRATIVE: CASE EVENT DATE: 20240101
